FAERS Safety Report 12217835 (Version 1)
Quarter: 2016Q1

REPORT INFORMATION
  Report Type: Spontaneous
  Country: US (occurrence: US)
  Receive Date: 20160329
  Receipt Date: 20160329
  Transmission Date: 20160526
  Serious: No
  Sender: FDA-Public Use
  Company Number: US-BAYER-2016-055996

PATIENT
  Age: 18 Year
  Sex: Female

DRUGS (1)
  1. ALEVE [Suspect]
     Active Substance: NAPROXEN SODIUM
     Indication: FEELING ABNORMAL
     Dosage: 5 DF, ONCE
     Dates: start: 20160321, end: 20160321

REACTIONS (2)
  - Incorrect dose administered [Recovered/Resolved]
  - Maternal exposure during pregnancy [None]

NARRATIVE: CASE EVENT DATE: 20160321
